FAERS Safety Report 23513699 (Version 1)
Quarter: 2024Q1

REPORT INFORMATION
  Report Type: Spontaneous
  Country: US (occurrence: US)
  Receive Date: 20240212
  Receipt Date: 20240212
  Transmission Date: 20240409
  Serious: Yes (Other)
  Sender: FDA-Public Use
  Company Number: US-PFIZER INC-202400038550

PATIENT
  Age: 54 Year
  Sex: Female

DRUGS (3)
  1. IBRANCE [Suspect]
     Active Substance: PALBOCICLIB
     Dosage: TAKE 1 CAPSULE (100MG) BY MOUTH DAILY
     Route: 048
     Dates: start: 20220311
  2. CAPECITABINE [Concomitant]
     Active Substance: CAPECITABINE
     Dosage: DECREASED DOSAGE TO 500MG ONLY
  3. CAPECITABINE [Concomitant]
     Active Substance: CAPECITABINE
     Dosage: ENDED THERAPY FOR THE 150MG ONLY

REACTIONS (1)
  - Neuropathy peripheral [Unknown]
